FAERS Safety Report 4355428-5 (Version None)
Quarter: 2004Q2

REPORT INFORMATION
  Report Type: 
  Country: None (occurrence: None)
  Receive Date: 20040504
  Receipt Date: 20040423
  Transmission Date: 20050107
  Serious: Yes (Death)
  Sender: FDA-Public Use
  Company Number: JP-JNJFOC-20040406090

PATIENT
  Age: 87 Year
  Sex: Female

DRUGS (6)
  1. FENTANYL [Suspect]
     Indication: CANCER PAIN
     Dosage: 2.5 MG, IN 1 DAY, TRANSDERMAL
     Route: 062
     Dates: start: 20040210, end: 20040210
  2. SOLITA-T1 (SOLITA-T1 INJECTION) [Concomitant]
  3. VITAMIN (VITAMINS NOS) [Concomitant]
  4. ASCORBIC ACID [Concomitant]
  5. ISOTONIC SODIUM CHLORIDE SOLUTION (ISOTONIC SOLUTIONS) [Concomitant]
  6. PANIPENEM-BETAMIPRIN (PANIPENEM) [Concomitant]

REACTIONS (1)
  - DEATH [None]
